FAERS Safety Report 9432910 (Version 1)
Quarter: 2013Q3

REPORT INFORMATION
  Report Type: Report from Study
  Country: CA (occurrence: CA)
  Receive Date: 20130731
  Receipt Date: 20130731
  Transmission Date: 20140515
  Serious: Yes (Other)
  Sender: FDA-Public Use
  Company Number: CA-JNJFOC-20130714924

PATIENT
  Age: 12 Year
  Sex: Female

DRUGS (4)
  1. REMICADE [Suspect]
     Indication: CROHN^S DISEASE
     Route: 042
  2. FLAGYL [Concomitant]
     Route: 065
  3. CIPRO [Concomitant]
     Route: 065
  4. PREDNISONE [Concomitant]
     Route: 065

REACTIONS (5)
  - Infusion related reaction [Unknown]
  - Hospitalisation [Unknown]
  - Crohn^s disease [Unknown]
  - Drug specific antibody present [Unknown]
  - Drug ineffective [Unknown]
